FAERS Safety Report 8555355-3 (Version None)
Quarter: 2012Q3

REPORT INFORMATION
  Report Type: 
  Country: None (occurrence: None)
  Receive Date: 20120731
  Receipt Date: 20120410
  Transmission Date: 20120928
  Serious: No
  Sender: FDA-Public Use
  Company Number: US-ASTRAZENECA-2011SE41988

PATIENT
  Age: 48 Year
  Sex: Female

DRUGS (2)
  1. SEROQUEL XR [Suspect]
     Route: 048
  2. SEROQUEL XR [Suspect]
     Route: 048

REACTIONS (6)
  - NASOPHARYNGITIS [None]
  - LARYNGITIS [None]
  - MALAISE [None]
  - INSOMNIA [None]
  - BRONCHITIS [None]
  - INTENTIONAL DRUG MISUSE [None]
